FAERS Safety Report 14013913 (Version 1)
Quarter: 2017Q3

REPORT INFORMATION
  Report Type: Spontaneous
  Country: TH (occurrence: TH)
  Receive Date: 20170926
  Receipt Date: 20170926
  Transmission Date: 20171128
  Serious: Yes (Other)
  Sender: FDA-Public Use
  Company Number: TH-B.I. PHARMACEUTICALS,INC./RIDGEFIELD-2017-BI-021356

PATIENT
  Age: 48 Year
  Sex: Female

DRUGS (5)
  1. VARGATEF [Suspect]
     Active Substance: NINTEDANIB
     Indication: LUNG ADENOCARCINOMA STAGE IV
     Route: 065
     Dates: start: 20161117
  2. VARGATEF [Suspect]
     Active Substance: NINTEDANIB
     Indication: METASTASES TO LUNG
     Route: 065
     Dates: start: 20161227
  3. DOCETAXEL. [Concomitant]
     Active Substance: DOCETAXEL
     Indication: PRODUCT USED FOR UNKNOWN INDICATION
     Route: 042
     Dates: start: 20161117
  4. DOCETAXEL. [Concomitant]
     Active Substance: DOCETAXEL
     Route: 042
     Dates: start: 20161206
  5. VARGATEF [Suspect]
     Active Substance: NINTEDANIB
     Indication: METASTASES TO BONE
     Route: 048
     Dates: start: 20170321, end: 20170424

REACTIONS (5)
  - Neutrophil count abnormal [Unknown]
  - Metastases to lung [Unknown]
  - Aspartate aminotransferase increased [Unknown]
  - Alanine aminotransferase increased [Unknown]
  - Metastases to bone [Unknown]

NARRATIVE: CASE EVENT DATE: 20161206
